FAERS Safety Report 15227874 (Version 1)
Quarter: 2018Q3

REPORT INFORMATION
  Report Type: Spontaneous
  Country: US (occurrence: US)
  Receive Date: 20180706
  Receipt Date: 20180706
  Transmission Date: 20181010
  Serious: Yes (Other)
  Sender: FDA-Public Use
  Company Number: None

PATIENT
  Age: 54 Year
  Sex: Female
  Weight: 88 kg

DRUGS (1)
  1. FLUTICASONE 50MCG [Suspect]
     Active Substance: FLUTICASONE
     Indication: MULTIPLE ALLERGIES
     Route: 055

REACTIONS (4)
  - Product quality issue [None]
  - Head discomfort [None]
  - Pulmonary pain [None]
  - Epistaxis [None]
